FAERS Safety Report 13130045 (Version 1)
Quarter: 2017Q1

REPORT INFORMATION
  Report Type: Report from Study
  Country: BR (occurrence: BR)
  Receive Date: 20170119
  Receipt Date: 20170119
  Transmission Date: 20170428
  Serious: Yes (Hospitalization)
  Sender: FDA-Public Use
  Company Number: PHHY2017BR006284

PATIENT
  Sex: Female

DRUGS (1)
  1. SANDOSTATIN LAR DEPOT [Suspect]
     Active Substance: OCTREOTIDE ACETATE
     Indication: ACROMEGALY
     Dosage: UNK
     Route: 030
     Dates: start: 2001

REACTIONS (7)
  - Malnutrition [Unknown]
  - Malaise [Unknown]
  - Dysstasia [Unknown]
  - Blood sodium decreased [Unknown]
  - Amnesia [Unknown]
  - Blood potassium decreased [Unknown]
  - Toxicity to various agents [Unknown]
